FAERS Safety Report 22120886 (Version 1)
Quarter: 2023Q1

REPORT INFORMATION
  Report Type: Spontaneous
  Country: AU (occurrence: AU)
  Receive Date: 20230321
  Receipt Date: 20230321
  Transmission Date: 20230418
  Serious: Yes (Other)
  Sender: FDA-Public Use
  Company Number: AU-PFIZER INC-PV202300050681

PATIENT
  Sex: Female

DRUGS (12)
  1. ADALIMUMAB [Suspect]
     Active Substance: ADALIMUMAB
     Dosage: UNK
     Dates: start: 201712, end: 201804
  2. METHOTREXATE SODIUM [Suspect]
     Active Substance: METHOTREXATE SODIUM
     Indication: Psoriatic arthropathy
     Dosage: UNK
     Dates: start: 2011
  3. METHOTREXATE SODIUM [Suspect]
     Active Substance: METHOTREXATE SODIUM
     Indication: Alopecia
     Dosage: QWK (EVERY WEEK)
     Dates: start: 20200618, end: 20210909
  4. SULFASALAZINE [Suspect]
     Active Substance: SULFASALAZINE
     Indication: Arthritis
     Dosage: UNK
     Dates: start: 2011
  5. SULFASALAZINE [Suspect]
     Active Substance: SULFASALAZINE
     Dosage: 1 G
     Dates: start: 20191205
  6. FOLIC ACID [Suspect]
     Active Substance: FOLIC ACID
     Dosage: UNK
     Dates: start: 2011
  7. LEFLUNOMIDE [Suspect]
     Active Substance: LEFLUNOMIDE
     Indication: Psoriatic arthropathy
     Dosage: UNK
  8. PREDNISOLONE [Suspect]
     Active Substance: PREDNISOLONE
     Dosage: UNK
     Dates: start: 2011
  9. PREDNISOLONE [Suspect]
     Active Substance: PREDNISOLONE
     Dosage: UNK
     Dates: start: 20181124, end: 201909
  10. SECUKINUMAB [Suspect]
     Active Substance: SECUKINUMAB
     Dosage: 150 MG
     Dates: start: 20170504, end: 20170928
  11. XELJANZ [Concomitant]
     Active Substance: TOFACITINIB CITRATE
     Dosage: UNK
     Dates: start: 20200521
  12. COVID-19 VACCINE [Concomitant]
     Dosage: DOSE 1, SINGLE
     Dates: start: 202106, end: 202106

REACTIONS (11)
  - Benign neoplasm of thyroid gland [Unknown]
  - Sepsis [Unknown]
  - Kidney infection [Unknown]
  - Urinary tract infection [Unknown]
  - Headache [Unknown]
  - Anaemia [Unknown]
  - Costochondritis [Unknown]
  - Dyspepsia [Unknown]
  - Pyrexia [Unknown]
  - Tenderness [Unknown]
  - Vasculitis [Unknown]

NARRATIVE: CASE EVENT DATE: 20180101
